FAERS Safety Report 19108313 (Version 1)
Quarter: 2021Q2

REPORT INFORMATION
  Report Type: Spontaneous
  Country: TW (occurrence: TW)
  Receive Date: 20210408
  Receipt Date: 20210408
  Transmission Date: 20210717
  Serious: Yes (Other)
  Sender: FDA-Public Use
  Company Number: TW-PFIZER INC-2021332724

PATIENT
  Age: 32 Year
  Sex: Male

DRUGS (1)
  1. BENEFIX [Suspect]
     Active Substance: COAGULATION FACTOR IX RECOMBINANT HUMAN\ISOPROPYL ALCOHOL
     Indication: FACTOR IX DEFICIENCY
     Dosage: 3500 IU
     Route: 042

REACTIONS (4)
  - Seizure [Recovering/Resolving]
  - Contusion [Recovering/Resolving]
  - Fall [Recovering/Resolving]
  - Haemarthrosis [Recovering/Resolving]

NARRATIVE: CASE EVENT DATE: 20210326
